FAERS Safety Report 20039449 (Version 1)
Quarter: 2021Q4

REPORT INFORMATION
  Report Type: Spontaneous
  Country: IT (occurrence: IT)
  Receive Date: 20211105
  Receipt Date: 20211105
  Transmission Date: 20220303
  Serious: Yes (Life-Threatening, Hospitalization, Other)
  Sender: FDA-Public Use
  Company Number: IT-MLMSERVICE-20211021-3179033-1

PATIENT
  Age: 27 Year
  Sex: Female

DRUGS (2)
  1. FUROSEMIDE [Suspect]
     Active Substance: FUROSEMIDE
     Indication: Cardiac failure
     Dosage: INTRAVENOUS INFUSION
     Route: 042
  2. SPIRONOLACTONE [Suspect]
     Active Substance: SPIRONOLACTONE
     Indication: Cardiac failure
     Dosage: INTRAVENOUS INFUSION
     Route: 042

REACTIONS (3)
  - Ventricular dysfunction [Unknown]
  - Haemoconcentration [Recovered/Resolved]
  - Cardiac ventricular thrombosis [Recovered/Resolved]
